FAERS Safety Report 7061178-7 (Version None)
Quarter: 2010Q4

REPORT INFORMATION
  Report Type: 
  Country: None (occurrence: None)
  Receive Date: 20101026
  Receipt Date: 20101018
  Transmission Date: 20110411
  Serious: Yes (Life-Threatening, Hospitalization, Disabling)
  Sender: FDA-Public Use
  Company Number: JP-ELI_LILLY_AND_COMPANY-JP200803001844

PATIENT
  Sex: Male
  Weight: 55 kg

DRUGS (3)
  1. GEMZAR [Suspect]
     Indication: PANCREATIC CARCINOMA STAGE IV
  2. GASTER D /JPN/ [Concomitant]
     Indication: GASTRITIS
     Dosage: 10 MG, 2/D
     Route: 048
     Dates: start: 20061121
  3. MAGMITT [Concomitant]
     Indication: CONSTIPATION
     Dosage: 1 D/F, 3/D
     Route: 048
     Dates: start: 20061213

REACTIONS (2)
  - HAEMOLYTIC URAEMIC SYNDROME [None]
  - TUBULOINTERSTITIAL NEPHRITIS [None]
